FAERS Safety Report 5703018-1 (Version None)
Quarter: 2008Q2

REPORT INFORMATION
  Report Type: 
  Country: None (occurrence: None)
  Receive Date: 20080411
  Receipt Date: 20080407
  Transmission Date: 20081010
  Serious: Yes (Hospitalization, Other)
  Sender: FDA-Public Use
  Company Number: FR-BRISTOL-MYERS SQUIBB COMPANY-14142228

PATIENT
  Age: 52 Year
  Sex: Female

DRUGS (4)
  1. VIDEX [Suspect]
     Dates: start: 20030101, end: 20070601
  2. KALETRA [Suspect]
     Dates: start: 20060401, end: 20070601
  3. EPIVIR [Suspect]
     Dates: start: 20030101, end: 20070601
  4. VIRAMUNE [Suspect]
     Dates: start: 20030101, end: 20060301

REACTIONS (6)
  - ASCITES [None]
  - CYTOMEGALOVIRUS CHORIORETINITIS [None]
  - HEPATIC FIBROSIS [None]
  - HYPERALDOSTERONISM [None]
  - PLEURAL EFFUSION [None]
  - PORTAL HYPERTENSION [None]
